FAERS Safety Report 21005440 (Version 2)
Quarter: 2022Q3

REPORT INFORMATION
  Report Type: Report from Study
  Country: ES (occurrence: None)
  Receive Date: 20220624
  Receipt Date: 20220728
  Transmission Date: 20221027
  Serious: Yes (Death, Hospitalization, Disabling)
  Sender: FDA-Public Use
  Company Number: ES-ROCHE-3122284

PATIENT
  Age: 74 Year
  Sex: Female
  Weight: 66 kg

DRUGS (14)
  1. ATEZOLIZUMAB [Suspect]
     Active Substance: ATEZOLIZUMAB
     Indication: Small cell lung cancer extensive stage
     Dosage: DOSE LAST STUDY DRUG ADMIN PRIOR SAE 1200 MG?START DATE OF MOST RECENT DOSE OF STUDY DRUG PRIOR TO A
     Route: 041
     Dates: start: 20220601
  2. CARBOPLATIN [Suspect]
     Active Substance: CARBOPLATIN
     Indication: Small cell lung cancer extensive stage
     Dosage: DOSE LAST STUDY DRUG ADMIN PRIOR AE +  SAE 579 MG?START DATE OF MOST RECENT DOSE OF STUDY DRUG PRIOR
     Route: 042
     Dates: start: 20220601
  3. ETOPOSIDE [Suspect]
     Active Substance: ETOPOSIDE
     Indication: Small cell lung cancer extensive stage
     Dosage: DOSE LAST STUDY DRUG ADMIN PRIOR AE + SAE 175 MG?START AND END DATE OF MOST RECENT DOSE OF STUDY DRU
     Route: 042
     Dates: start: 20220601
  4. SERTRALINE [Concomitant]
     Active Substance: SERTRALINE HYDROCHLORIDE
     Indication: Depression
  5. TRAMADOL [Concomitant]
     Active Substance: TRAMADOL
     Indication: Pain
  6. ACETAMINOPHEN [Concomitant]
     Active Substance: ACETAMINOPHEN
     Indication: Pain
  7. ALBUTEROL [Concomitant]
     Active Substance: ALBUTEROL
     Indication: Chronic obstructive pulmonary disease
  8. INCRUSE ELLIPTA [Concomitant]
     Active Substance: UMECLIDINIUM BROMIDE
     Indication: Chronic obstructive pulmonary disease
  9. MIRABEGRON [Concomitant]
     Active Substance: MIRABEGRON
     Indication: Hypertonic bladder
  10. ALPRAZOLAM [Concomitant]
     Active Substance: ALPRAZOLAM
     Indication: Depression
  11. LORAZEPAM [Concomitant]
     Active Substance: LORAZEPAM
     Indication: Depression
  12. OMEPRAZOLE [Concomitant]
     Active Substance: OMEPRAZOLE
     Indication: Gastrointestinal disorder prophylaxis
  13. FORMOTEROL [Concomitant]
     Active Substance: FORMOTEROL
     Indication: Chronic obstructive pulmonary disease
     Dates: start: 20220618, end: 20220628
  14. BUDESONIDE [Concomitant]
     Active Substance: BUDESONIDE
     Indication: Chronic obstructive pulmonary disease
     Dates: start: 20220618, end: 20220628

REACTIONS (1)
  - General physical health deterioration [Fatal]

NARRATIVE: CASE EVENT DATE: 20220618
